FAERS Safety Report 6235941-6 (Version None)
Quarter: 2009Q2

REPORT INFORMATION
  Report Type: 
  Country: None (occurrence: None)
  Receive Date: 20090619
  Receipt Date: 20090609
  Transmission Date: 20091009
  Serious: Yes (Other)
  Sender: FDA-Public Use
  Company Number: PHHY2009DE09952

PATIENT
  Age: 80 Year
  Sex: Female

DRUGS (7)
  1. STALEVO 100 [Suspect]
     Indication: PARKINSON'S DISEASE
     Dosage: 1 DF, TID
     Route: 048
     Dates: start: 20081111, end: 20090211
  2. SIFROL [Concomitant]
     Dosage: 0.7
  3. TREMARIT [Concomitant]
  4. VOLTAREN [Concomitant]
  5. BISOHEXAL [Concomitant]
  6. NOVAMINSULFON [Concomitant]
  7. TRAMADOL HCL [Concomitant]

REACTIONS (11)
  - ABDOMINAL DISCOMFORT [None]
  - ANOREXIA [None]
  - CHOLESTASIS [None]
  - CONSTIPATION [None]
  - DIARRHOEA [None]
  - HIP SURGERY [None]
  - LIVER FUNCTION TEST ABNORMAL [None]
  - LIVER INJURY [None]
  - NAUSEA [None]
  - VOMITING [None]
  - WEIGHT DECREASED [None]
